FAERS Safety Report 6771938-5 (Version None)
Quarter: 2010Q2

REPORT INFORMATION
  Report Type: 
  Country: None (occurrence: None)
  Receive Date: 20100616
  Receipt Date: 20100609
  Transmission Date: 20101027
  Serious: Yes (Hospitalization)
  Sender: FDA-Public Use
  Company Number: US-JNJFOC-20100603381

PATIENT
  Sex: Female
  Weight: 102.51 kg

DRUGS (5)
  1. FENTANYL CITRATE [Suspect]
     Indication: PAIN
     Route: 062
  2. FENTANYL CITRATE [Suspect]
     Route: 062
  3. FENTANYL CITRATE [Suspect]
     Route: 062
  4. FENTANYL CITRATE [Suspect]
     Dosage: 75 UG/HR 2 PATCHES
     Route: 062
  5. SYNTHROID [Concomitant]
     Indication: HYPOTHYROIDISM
     Route: 048

REACTIONS (5)
  - BLOOD GLUCOSE FLUCTUATION [None]
  - BLOOD TEST ABNORMAL [None]
  - DRUG INEFFECTIVE [None]
  - PAIN [None]
  - SPINAL COLUMN STENOSIS [None]
